FAERS Safety Report 7318523-4 (Version None)
Quarter: 2011Q1

REPORT INFORMATION
  Report Type: 
  Country: None (occurrence: None)
  Receive Date: 20110228
  Receipt Date: 20110211
  Transmission Date: 20110831
  Serious: Yes (Other)
  Sender: FDA-Public Use
  Company Number: US-BAYER-201024911NA

PATIENT
  Sex: Female
  Weight: 66 kg

DRUGS (10)
  1. FLUOXETINE [Concomitant]
     Dosage: 20 MG, UNK
  2. TRIMETHOBENZAMIDE HCL [Concomitant]
     Dosage: 300 MG, UNK
     Route: 048
  3. CELEXA [Concomitant]
     Indication: DEPRESSION
     Dosage: 20 MG, UNK
  4. MUCINEX [Concomitant]
  5. FLONASE [Concomitant]
     Dosage: 0.05 MG, UNK
  6. TRI-SPRINTEC [Concomitant]
     Indication: CONTRACEPTION
     Dosage: UNK
     Route: 048
     Dates: start: 20080101
  7. CLARITIN [Concomitant]
     Dosage: 10 MG, UNK
  8. YAZ [Suspect]
     Indication: CONTRACEPTION
     Route: 048
     Dates: start: 20061001, end: 20080523
  9. ALDARA [Concomitant]
     Route: 061
  10. LEXAPRO [Concomitant]
     Dosage: 10 MG, UNK

REACTIONS (5)
  - NAUSEA [None]
  - CHOLELITHIASIS [None]
  - ABDOMINAL PAIN [None]
  - CHOLECYSTITIS CHRONIC [None]
  - BILIARY COLIC [None]
